FAERS Safety Report 11855225 (Version 2)
Quarter: 2015Q4

REPORT INFORMATION
  Report Type: Spontaneous
  Country: ES (occurrence: ES)
  Receive Date: 20151221
  Receipt Date: 20151221
  Transmission Date: 20160305
  Serious: Yes (Other)
  Sender: FDA-Public Use
  Company Number: ES-ACTAVIS-2015-27892

PATIENT
  Age: 74 Year
  Sex: Female

DRUGS (18)
  1. RAMIPRIL (UNKNOWN) [Interacting]
     Active Substance: RAMIPRIL
     Indication: PRODUCT USED FOR UNKNOWN INDICATION
     Dosage: 5 MG, UNKNOWN
     Route: 065
  2. FOLIC ACID. [Concomitant]
     Active Substance: FOLIC ACID
     Indication: PRODUCT USED FOR UNKNOWN INDICATION
     Dosage: 5 MG, UNKNOWN
     Route: 065
  3. CLOBETASOL (UNKNOWN) [Suspect]
     Active Substance: CLOBETASOL
     Indication: PRODUCT USED FOR UNKNOWN INDICATION
     Dosage: UNK
     Route: 061
  4. METHYLPREDNISOLONE (UNKNOWN) [Interacting]
     Active Substance: METHYLPREDNISOLONE
     Indication: ERYTHEMA
     Dosage: UNK
     Route: 061
  5. ALPRAZOLAM (UNKNOWN) [Interacting]
     Active Substance: ALPRAZOLAM
     Indication: EUPHORIC MOOD
     Dosage: UNK
     Route: 065
  6. METHOTREXATE (METHOTREXATE SODIUM) [Interacting]
     Active Substance: METHOTREXATE SODIUM
     Indication: ERYTHRODERMIC PSORIASIS
     Dosage: 2.5 MG, UNKNOWN
     Route: 065
  7. BISOPROLOL (UNKNOWN) [Interacting]
     Active Substance: BISOPROLOL
     Indication: PRODUCT USED FOR UNKNOWN INDICATION
     Dosage: 5 MG, UNK
     Route: 065
  8. DILTIAZEM (UNKNOWN) [Interacting]
     Active Substance: DILTIAZEM
     Indication: PRODUCT USED FOR UNKNOWN INDICATION
     Dosage: 120 MG, UNKNOWN
     Route: 065
  9. ALPRAZOLAM (UNKNOWN) [Interacting]
     Active Substance: ALPRAZOLAM
     Indication: DISORIENTATION
  10. FUROSEMIDE (UNKNOWN) [Interacting]
     Active Substance: FUROSEMIDE
     Indication: PRODUCT USED FOR UNKNOWN INDICATION
     Dosage: 60 MG, UNKNOWN
     Route: 065
  11. PREDNISONE (UNKNOWN) [Interacting]
     Active Substance: PREDNISONE
     Indication: ERYTHRODERMIC PSORIASIS
     Dosage: 0.5 MG/KG, UNKNOWN
     Route: 048
  12. DIGOXIN (UNKNOWN) [Interacting]
     Active Substance: DIGOXIN
     Indication: PRODUCT USED FOR UNKNOWN INDICATION
     Dosage: 0.125 MG, UNKNOWN
     Route: 065
  13. HYDROCHLOROTHIAZIDE (UNKNOWN) [Interacting]
     Active Substance: HYDROCHLOROTHIAZIDE
     Indication: PRODUCT USED FOR UNKNOWN INDICATION
     Dosage: 25 MG, UNKNOWN
     Route: 065
  14. OMEPRAZOLE (UNKNOWN) [Interacting]
     Active Substance: OMEPRAZOLE
     Indication: PRODUCT USED FOR UNKNOWN INDICATION
     Dosage: 20 MG, UNKNOWN
     Route: 065
  15. ENOXAPARIN [Interacting]
     Active Substance: ENOXAPARIN
     Indication: PRODUCT USED FOR UNKNOWN INDICATION
     Dosage: 40 MG, UNKNOWN
     Route: 065
  16. ACENOCOUMAROL [Interacting]
     Active Substance: ACENOCOUMAROL
     Indication: PRODUCT USED FOR UNKNOWN INDICATION
     Dosage: 1 MG, UNKNOWN
     Route: 065
  17. CLORAZEPATE DIPOTASSIUM (WATSON LABORATORIES) [Interacting]
     Active Substance: CLORAZEPATE DIPOTASSIUM
     Indication: PRODUCT USED FOR UNKNOWN INDICATION
     Dosage: 5 MG, UNK
     Route: 065
  18. HYDROCORTISONE (UNKNOWN) [Interacting]
     Active Substance: HYDROCORTISONE
     Indication: ERYTHRODERMIC PSORIASIS
     Dosage: UNK
     Route: 061

REACTIONS (10)
  - Stupor [Unknown]
  - Erythrodermic psoriasis [Recovering/Resolving]
  - Toxicity to various agents [Recovering/Resolving]
  - Euphoric mood [Unknown]
  - Condition aggravated [Recovering/Resolving]
  - Drug interaction [Unknown]
  - Somnolence [Unknown]
  - Erythema [Recovering/Resolving]
  - Transaminases increased [Recovering/Resolving]
  - Disorientation [Unknown]
